FAERS Safety Report 8838232 (Version 2)
Quarter: 2013Q1

REPORT INFORMATION
  Report Type: Spontaneous
  Country: US (occurrence: US)
  Receive Date: 20121012
  Receipt Date: 20130102
  Transmission Date: 20140127
  Serious: Yes (Hospitalization, Other)
  Sender: FDA-Public Use
  Company Number: US-INCYTE CORPORATION-2012IN002025

PATIENT
  Age: 70 Year
  Sex: Male

DRUGS (4)
  1. JAKAFI [Suspect]
     Indication: MYELODYSPLASTIC SYNDROME
     Dosage: 20 MG, BID
     Route: 048
     Dates: start: 20120419, end: 20120820
  2. HYDROXYUREA [Concomitant]
  3. VIDAZA [Concomitant]
  4. DANAZOL [Concomitant]

REACTIONS (1)
  - Acute leukaemia [Unknown]
